FAERS Safety Report 5644158-5 (Version None)
Quarter: 2008Q1

REPORT INFORMATION
  Report Type: 
  Country: None (occurrence: None)
  Receive Date: 20080227
  Receipt Date: 20080219
  Transmission Date: 20080703
  Serious: Yes (Other)
  Sender: FDA-Public Use
  Company Number: 163-20785-08021102

PATIENT
  Age: 61 Year
  Sex: Male

DRUGS (3)
  1. THALOMID [Suspect]
     Indication: DRUG USE FOR UNKNOWN INDICATION
     Dosage: 200 MG, 4 IN 1 D, ORAL; 100 MG, DAILY, ORAL; 150 MG, DAILY, ORAL
     Route: 048
     Dates: start: 20071030, end: 20071101
  2. THALOMID [Suspect]
     Indication: DRUG USE FOR UNKNOWN INDICATION
     Dosage: 200 MG, 4 IN 1 D, ORAL; 100 MG, DAILY, ORAL; 150 MG, DAILY, ORAL
     Route: 048
     Dates: start: 20071126, end: 20080201
  3. THALOMID [Suspect]
     Indication: DRUG USE FOR UNKNOWN INDICATION
     Dosage: 200 MG, 4 IN 1 D, ORAL; 100 MG, DAILY, ORAL; 150 MG, DAILY, ORAL
     Route: 048
     Dates: start: 20080219

REACTIONS (2)
  - HAEMOGLOBIN DECREASED [None]
  - HAEMORRHAGE [None]
